FAERS Safety Report 8762724 (Version 2)
Quarter: 2012Q4

REPORT INFORMATION
  Report Type: Report from Study
  Country: US (occurrence: US)
  Receive Date: 20120831
  Receipt Date: 20121204
  Transmission Date: 20130627
  Serious: Yes (Life-Threatening)
  Sender: FDA-Public Use
  Company Number: US-ROCHE-1101736

PATIENT
  Age: 47 Year
  Sex: Female
  Weight: 54.48 kg

DRUGS (6)
  1. OMALIZUMAB [Suspect]
     Indication: ASTHMA
     Route: 058
     Dates: start: 20120301, end: 20120502
  2. OMALIZUMAB [Suspect]
     Route: 058
     Dates: start: 20120402, end: 20120706
  3. PREDNISONE [Concomitant]
  4. ADVAIR [Concomitant]
  5. SINGULAIR [Concomitant]
  6. VENTOLIN [Concomitant]

REACTIONS (1)
  - Asthma [Recovered/Resolved]
